FAERS Safety Report 13313439 (Version 1)
Quarter: 2017Q1

REPORT INFORMATION
  Report Type: Report from Study
  Country: JP (occurrence: JP)
  Receive Date: 20170309
  Receipt Date: 20170309
  Transmission Date: 20170428
  Serious: Yes (Hospitalization, Other)
  Sender: FDA-Public Use
  Company Number: JP-BAXTER-2010BH005136

PATIENT
  Age: 1 Year
  Sex: Male
  Weight: 10 kg

DRUGS (17)
  1. HUMAN COAGULATION FACTOR VIII (RDNA) [Suspect]
     Active Substance: ANTIHEMOPHILIC FACTOR, HUMAN RECOMBINANT
     Dosage: 500 IU, 1X A DAY
     Route: 042
     Dates: start: 20110501, end: 20110501
  2. TRANSAMIN [Concomitant]
     Active Substance: TRANEXAMIC ACID
     Indication: MOUTH HAEMORRHAGE
     Dosage: 1000 MG, 3X A DAY
     Route: 048
     Dates: start: 20110114, end: 20110114
  3. ACICLOVIR [Concomitant]
     Active Substance: ACYCLOVIR
     Indication: VARICELLA
     Dosage: 240MILLIGRAM4X A DAY
     Route: 048
     Dates: start: 20101212, end: 20101218
  4. HUMAN COAGULATION FACTOR VIII (RDNA) [Suspect]
     Active Substance: ANTIHEMOPHILIC FACTOR, HUMAN RECOMBINANT
     Indication: HAEMARTHROSIS
     Dosage: 500 IU, 1X A DAY
     Route: 042
     Dates: start: 20110114, end: 20110114
  5. HUMAN COAGULATION FACTOR VIII (RDNA) [Concomitant]
     Active Substance: ANTIHEMOPHILIC FACTOR, HUMAN RECOMBINANT
     Indication: HAEMOSTASIS
     Dosage: ON DEMAND
     Route: 042
     Dates: start: 20100125, end: 20100221
  6. HUMAN COAGULATION FACTOR VIII (RDNA) [Concomitant]
     Active Substance: ANTIHEMOPHILIC FACTOR, HUMAN RECOMBINANT
     Dosage: 500IU (INTERNATIONAL UNIT)1X A DAY
     Route: 042
     Dates: start: 20110501, end: 20110501
  7. FEIBA [Suspect]
     Active Substance: ANTI-INHIBITOR COAGULANT COMPLEX
     Indication: FACTOR VIII INHIBITION
     Dosage: 1000 IU, 3X A WEEK, REGULAR ADMINISTRATION, AT THE AGE OF 2 YEARS AND 10 MONTHS
     Route: 042
  8. HUMAN COAGULATION FACTOR VIII (RDNA) [Concomitant]
     Active Substance: ANTIHEMOPHILIC FACTOR, HUMAN RECOMBINANT
     Indication: HAEMORRHAGE
     Dosage: 500IU (INTERNATIONAL UNIT)1X A DAY
     Route: 042
     Dates: start: 20100812, end: 20100815
  9. HUMAN COAGULATION FACTOR VIII (RDNA) [Suspect]
     Active Substance: ANTIHEMOPHILIC FACTOR, HUMAN RECOMBINANT
     Indication: HAEMOSTASIS
     Dosage: ON DEMAND
     Route: 042
     Dates: start: 20090630, end: 20100124
  10. HUMAN COAGULATION FACTOR VIII (RDNA) [Concomitant]
     Active Substance: ANTIHEMOPHILIC FACTOR, HUMAN RECOMBINANT
     Indication: TONGUE HAEMORRHAGE
     Dosage: ITI THERAPY
     Route: 042
     Dates: start: 20120719
  11. HUMAN COAGULATION FACTOR VIII (RDNA) [Suspect]
     Active Substance: ANTIHEMOPHILIC FACTOR, HUMAN RECOMBINANT
     Indication: FACTOR VIII DEFICIENCY
     Dosage: 250 IU, 2X A WEEK, AT THE AGE OF 1 YEAR AND 4 MONTHS, PROPHYLAXIS
     Route: 042
  12. HUMAN COAGULATION FACTOR VIII (RDNA) [Concomitant]
     Active Substance: ANTIHEMOPHILIC FACTOR, HUMAN RECOMBINANT
     Indication: FACTOR VIII INHIBITION
     Dosage: 43IU (INTERNATIONAL UNIT)3X A WEEK
     Route: 042
     Dates: start: 20100904, end: 20110811
  13. HUMAN COAGULATION FACTOR VIII (RDNA) [Concomitant]
     Active Substance: ANTIHEMOPHILIC FACTOR, HUMAN RECOMBINANT
     Indication: MOUTH HAEMORRHAGE
     Dosage: 500IU (INTERNATIONAL UNIT)1X A DAY
     Route: 042
     Dates: start: 20110114, end: 20110114
  14. TRANSAMIN [Concomitant]
     Active Substance: TRANEXAMIC ACID
     Indication: HAEMOSTASIS
     Dosage: UNK
     Route: 048
  15. CONFACT F [Concomitant]
     Active Substance: ANTIHEMOPHILIC FACTOR HUMAN
     Indication: FACTOR VIII INHIBITION
     Dosage: 1000 IU, 3X A WEEK, AT THE AGE OF 2 YEARS AND 4 MONTHS
     Route: 042
  16. HUMAN COAGULATION FACTOR VIII (RDNA) [Concomitant]
     Active Substance: ANTIHEMOPHILIC FACTOR, HUMAN RECOMBINANT
     Indication: IMMUNE TOLERANCE INDUCTION
     Dosage: 36IU/KG3X A WEEK
     Route: 042
     Dates: start: 20100222, end: 20100903
  17. FERRIC PYROPHOSPHATE [Concomitant]
     Active Substance: FERRIC PYROPHOSPHATE
     Indication: ANAEMIA
     Dosage: 12MILLIGRAM2X A DAY
     Route: 048
     Dates: start: 20100221

REACTIONS (2)
  - Factor VIII inhibition [Recovered/Resolved]
  - Haemorrhage [Unknown]

NARRATIVE: CASE EVENT DATE: 20100125
